FAERS Safety Report 7055195-0 (Version None)
Quarter: 2010Q4

REPORT INFORMATION
  Report Type: 
  Country: None (occurrence: None)
  Receive Date: 20101020
  Receipt Date: 20101020
  Transmission Date: 20110411
  Serious: No
  Sender: FDA-Public Use
  Company Number: None

PATIENT
  Age: 74 Year
  Sex: Male
  Weight: 72.5755 kg

DRUGS (2)
  1. TRAVATAN [Suspect]
     Dosage: 1 DROP AT BEDTIME
     Dates: start: 20091201
  2. TRAVOPROST [Suspect]

REACTIONS (3)
  - DRUG INEFFECTIVE [None]
  - ERYTHEMA OF EYELID [None]
  - EYE DISORDER [None]
